FAERS Safety Report 12390648 (Version 3)
Quarter: 2016Q2

REPORT INFORMATION
  Report Type: Spontaneous
  Country: GB (occurrence: GB)
  Receive Date: 20160520
  Receipt Date: 20160610
  Transmission Date: 20160815
  Serious: Yes (Disabling)
  Sender: FDA-Public Use
  Company Number: GB-SA-2016SA095418

PATIENT
  Age: 65 Year
  Sex: Male
  Weight: 97 kg

DRUGS (24)
  1. CHEMYDUR XL [Concomitant]
     Dosage: 60 XL
     Dates: start: 20160503
  2. RAMIPRIL. [Concomitant]
     Active Substance: RAMIPRIL
     Dosage: 5 MG
     Dates: start: 20160503
  3. CITALOPRAM [Concomitant]
     Active Substance: CITALOPRAM HYDROBROMIDE
     Dosage: 20 MG
     Dates: start: 20160503
  4. NOVOPEN [Concomitant]
     Active Substance: INSULIN HUMAN
     Dates: start: 20150922
  5. ALLOPURINOL. [Concomitant]
     Active Substance: ALLOPURINOL
     Dosage: 100 MG
     Dates: start: 20160512
  6. TOUJEO [Suspect]
     Active Substance: INSULIN GLARGINE
     Indication: DIABETES MELLITUS
     Route: 058
     Dates: start: 20160201
  7. SOLOSTAR [Concomitant]
     Active Substance: DEVICE
     Indication: DIABETES MELLITUS
     Dates: start: 20160201
  8. COCODAMOL [Concomitant]
     Active Substance: ACETAMINOPHEN\CODEINE PHOSPHATE
     Dosage: 1-2  TABLETS TO BE TAKEN FOUR TIMES DAILY AS REQUIRED; 8MG/500 MG
     Dates: start: 20160425
  9. HUMALOG [Suspect]
     Active Substance: INSULIN LISPRO
     Dosage: DOSE:43 UNIT(S)
     Route: 058
     Dates: start: 20160324, end: 20160517
  10. TIOTROPIUM BROMIDE [Concomitant]
     Active Substance: TIOTROPIUM BROMIDE
     Route: 055
     Dates: start: 20160415
  11. EPLERENONE. [Concomitant]
     Active Substance: EPLERENONE
     Dosage: 25 MG
     Dates: start: 20160503
  12. ATORVASTATIN [Concomitant]
     Active Substance: ATORVASTATIN
     Dosage: 80 MG
     Dates: start: 20160503
  13. ASPIRIN. [Concomitant]
     Active Substance: ASPIRIN
     Dosage: 75 MG
     Dates: start: 20160503
  14. TEMAZEPAM. [Concomitant]
     Active Substance: TEMAZEPAM
     Dosage: 10 MG
     Dates: start: 20160503
  15. TOUJEO [Suspect]
     Active Substance: INSULIN GLARGINE
     Indication: DIABETES MELLITUS
     Dosage: DOSE:130 UNIT(S)
     Route: 058
     Dates: start: 20160324, end: 20160517
  16. WARFARIN [Concomitant]
     Active Substance: WARFARIN
     Dates: start: 20160503
  17. IVABRADINE [Concomitant]
     Active Substance: IVABRADINE
     Dosage: STRENGTH: 5 MG
     Dates: start: 20160503
  18. NOVOPEN [Concomitant]
     Active Substance: INSULIN HUMAN
     Dates: start: 20150817
  19. FLEXITOL HEEL BALM [Concomitant]
     Dates: start: 20160503
  20. TRADJENTA [Concomitant]
     Active Substance: LINAGLIPTIN
     Dosage: 5 XNG
     Dates: start: 20160503
  21. DOXYCYCLINE. [Concomitant]
     Active Substance: DOXYCYCLINE
     Dosage: 100 MG
     Dates: start: 20160413
  22. OMEPRAZOLE. [Concomitant]
     Active Substance: OMEPRAZOLE
     Dosage: 20 MG
     Dates: start: 20160503
  23. DIGOXIN. [Concomitant]
     Active Substance: DIGOXIN
     Dosage: 62.5 MCG
     Dates: start: 20160503
  24. BUMETANIDE. [Concomitant]
     Active Substance: BUMETANIDE
     Dosage: 1 MG
     Dates: start: 20160503

REACTIONS (3)
  - Joint swelling [Not Recovered/Not Resolved]
  - Glycosylated haemoglobin increased [Unknown]
  - Blood glucose increased [Unknown]

NARRATIVE: CASE EVENT DATE: 20160327
